FAERS Safety Report 13548755 (Version 1)
Quarter: 2017Q2

REPORT INFORMATION
  Report Type: Spontaneous
  Country: FR (occurrence: FR)
  Receive Date: 20170516
  Receipt Date: 20170516
  Transmission Date: 20170830
  Serious: Yes (Life-Threatening)
  Sender: FDA-Public Use
  Company Number: FR-009507513-1705FRA006251

PATIENT
  Age: 55 Year
  Sex: Male

DRUGS (8)
  1. NORSET [Suspect]
     Active Substance: MIRTAZAPINE
     Indication: POISONING
     Dosage: 45 MG (3 TABLETS) AT BEDTIME, USUAL TREATMENT
     Route: 048
  2. THERALENE [Suspect]
     Active Substance: TRIMEPRAZINE
     Indication: POISONING
     Dosage: 15 DROPS AT BEDTIME, USUAL TREATMENT
     Route: 048
  3. TERCIAN [Suspect]
     Active Substance: CYAMEMAZINE
     Indication: POISONING
     Dosage: UNK, USUAL TREATMENT
     Dates: start: 2014
  4. NORSET [Suspect]
     Active Substance: MIRTAZAPINE
     Indication: PRODUCT USED FOR UNKNOWN INDICATION
     Dosage: 1 BOX, UNK
     Route: 048
     Dates: start: 201704
  5. LEXOMIL [Suspect]
     Active Substance: BROMAZEPAM
     Indication: POISONING
     Dosage: 0.5 PC AT BEDTIME, USUAL TREATMENT
  6. LEXOMIL [Suspect]
     Active Substance: BROMAZEPAM
     Indication: PRODUCT USED FOR UNKNOWN INDICATION
     Dosage: 1 BOX, UNK
     Route: 048
     Dates: start: 201704
  7. THERALENE [Suspect]
     Active Substance: TRIMEPRAZINE
     Indication: PRODUCT USED FOR UNKNOWN INDICATION
     Dosage: 1 BOTTLE, UNK
     Route: 048
     Dates: start: 201704
  8. TERCIAN [Suspect]
     Active Substance: CYAMEMAZINE
     Indication: PRODUCT USED FOR UNKNOWN INDICATION
     Dosage: UNK
     Route: 048
     Dates: start: 201704

REACTIONS (1)
  - Coma [Recovered/Resolved]

NARRATIVE: CASE EVENT DATE: 20170411
